FAERS Safety Report 9648202 (Version 4)
Quarter: 2014Q1

REPORT INFORMATION
  Report Type: Spontaneous
  Country: JP (occurrence: JP)
  Receive Date: 20131028
  Receipt Date: 20140114
  Transmission Date: 20141002
  Serious: Yes (Other)
  Sender: FDA-Public Use
  Company Number: PHHY2013JP120757

PATIENT
  Age: 34 Year
  Sex: Female
  Weight: 93 kg

DRUGS (1)
  1. EXFORGE [Suspect]
     Indication: HYPERTENSION
     Dosage: 1 DF, DAILY
     Route: 048
     Dates: end: 20130806

REACTIONS (4)
  - Premature labour [Recovered/Resolved]
  - Preterm premature rupture of membranes [Recovered/Resolved]
  - Oligohydramnios [Recovering/Resolving]
  - Maternal exposure during pregnancy [Unknown]
